FAERS Safety Report 7434979-0 (Version None)
Quarter: 2011Q2

REPORT INFORMATION
  Report Type: 
  Country: None (occurrence: None)
  Receive Date: 20110425
  Receipt Date: 20110415
  Transmission Date: 20111010
  Serious: Yes (Hospitalization)
  Sender: FDA-Public Use
  Company Number: SE-ROCHE-771954

PATIENT

DRUGS (1)
  1. ROACTEMRA [Suspect]
     Dosage: START DATE 2011
     Route: 065

REACTIONS (6)
  - UROSEPSIS [None]
  - HAEMOGLOBIN DECREASED [None]
  - RETINAL ARTERY EMBOLISM [None]
  - PYREXIA [None]
  - RAYNAUD'S PHENOMENON [None]
  - OEDEMA PERIPHERAL [None]
